FAERS Safety Report 7064429-8 (Version None)
Quarter: 2010Q4

REPORT INFORMATION
  Report Type: 
  Country: None (occurrence: None)
  Receive Date: 20101027
  Receipt Date: 20101015
  Transmission Date: 20110411
  Serious: Yes (Hospitalization, Other)
  Sender: FDA-Public Use
  Company Number: PHHY2010BR69498

PATIENT
  Sex: Female

DRUGS (6)
  1. FORASEQ [Suspect]
     Indication: CARDIAC FAILURE
     Dosage: 1 DF, QD
     Dates: start: 20100401
  2. FORASEQ [Suspect]
     Indication: PULMONARY OEDEMA
     Dosage: 1 DF, BID
     Dates: start: 20100605, end: 20100609
  3. ALDACTONE [Concomitant]
     Indication: HYPERTENSION
     Dosage: 1 DF, QD
     Route: 048
     Dates: start: 20100601
  4. SOMALGIN [Concomitant]
     Dosage: 1 DF, QD
  5. ANCORON [Concomitant]
     Dosage: 1 DF, QD
     Route: 048
     Dates: start: 20100601
  6. XALATAN [Concomitant]
     Indication: GLAUCOMA
     Dosage: 1 DROP ON EACH EYE IN THE MORNING
     Route: 047

REACTIONS (5)
  - CARDIAC FAILURE [None]
  - CHRONIC OBSTRUCTIVE PULMONARY DISEASE [None]
  - ENDOCARDITIS BACTERIAL [None]
  - MALAISE [None]
  - PULMONARY OEDEMA [None]
